FAERS Safety Report 8256783-6 (Version None)
Quarter: 2012Q2

REPORT INFORMATION
  Report Type: 
  Country: None (occurrence: None)
  Receive Date: 20120403
  Receipt Date: 20120320
  Transmission Date: 20120825
  Serious: Yes (Other)
  Sender: FDA-Public Use
  Company Number: PHHY2012IT027892

PATIENT
  Sex: Male

DRUGS (8)
  1. MYCOPHENOLATE MOFETIL [Suspect]
     Dosage: 20-30 MG/KG, UNK
  2. CYCLOSPORINE [Suspect]
     Dosage: 2 MG/KG, UNK
  3. CYCLOSPORINE [Suspect]
     Dosage: 4-5 MG/KG, UNK
  4. PLASMAPHERESIS BLOOD-PACK SYSTEM INFUSION [Concomitant]
  5. PREDNISONE TAB [Suspect]
  6. METHYLPREDNISOLONE [Suspect]
     Dosage: 20 MG/KG, FOR THREE TO FIVE TIMES
     Route: 042
  7. ADRENOCORTICOTROPHIC HORMONE [Suspect]
     Dosage: 1 MG/WEEK
     Route: 030
  8. CYCLOPHOSPHAMIDE [Suspect]
     Dosage: 2.5 MG/KG, FOR 8 WEEKS

REACTIONS (2)
  - GLOMERULAR FILTRATION RATE DECREASED [None]
  - CUSHINGOID [None]
